FAERS Safety Report 9009475 (Version 1)
Quarter: 2013Q1

REPORT INFORMATION
  Report Type: Spontaneous
  Country: CA (occurrence: CA)
  Receive Date: 20130110
  Receipt Date: 20130110
  Transmission Date: 20140127
  Serious: Yes (Death)
  Sender: FDA-Public Use
  Company Number: CA-B.I. PHARMACEUTICALS,INC./RIDGEFIELD-2013-CN-00015CN

PATIENT
  Age: 83 Year
  Sex: Male
  Weight: 80 kg

DRUGS (1)
  1. PRADAX [Suspect]
     Dosage: 220 MG
     Route: 048

REACTIONS (5)
  - Gastrointestinal haemorrhage [Fatal]
  - Blood creatinine increased [Fatal]
  - Blood product transfusion [Fatal]
  - Packed red blood cell transfusion [Fatal]
  - Pneumonia aspiration [Fatal]
